FAERS Safety Report 15014082 (Version 1)
Quarter: 2018Q2

REPORT INFORMATION
  Report Type: Not Available
  Country: US (occurrence: US)
  Receive Date: 20180615
  Receipt Date: 20180615
  Transmission Date: 20180711
  Serious: No
  Sender: FDA-Public Use
  Company Number: US-NEUROCRINE BIOSCIENCES INC.-2018NBI01709

PATIENT
  Sex: Male

DRUGS (13)
  1. FENOFIBRATE. [Concomitant]
     Active Substance: FENOFIBRATE
  2. INGREZZA [Suspect]
     Active Substance: VALBENAZINE
     Indication: TARDIVE DYSKINESIA
     Route: 048
     Dates: start: 20170920, end: 20180502
  3. PLAVIX [Concomitant]
     Active Substance: CLOPIDOGREL BISULFATE
  4. RANEXA [Concomitant]
     Active Substance: RANOLAZINE
  5. BUPROPION. [Concomitant]
     Active Substance: BUPROPION
  6. MEMANTINE. [Concomitant]
     Active Substance: MEMANTINE
  7. DONEPEZIL. [Concomitant]
     Active Substance: DONEPEZIL
  8. ALPRAZOLAM. [Concomitant]
     Active Substance: ALPRAZOLAM
  9. ISOSORBIDE. [Concomitant]
     Active Substance: ISOSORBIDE
  10. BENZTROPINE. [Concomitant]
     Active Substance: BENZTROPINE
  11. OMEPRAZOLE. [Concomitant]
     Active Substance: OMEPRAZOLE
  12. SIMVASTATIN. [Concomitant]
     Active Substance: SIMVASTATIN
  13. ZIPRASIDONE. [Concomitant]
     Active Substance: ZIPRASIDONE

REACTIONS (1)
  - Cardiac disorder [Unknown]
